FAERS Safety Report 4355186-4 (Version None)
Quarter: 2004Q2

REPORT INFORMATION
  Report Type: 
  Country: None (occurrence: None)
  Receive Date: 20040510
  Receipt Date: 20040225
  Transmission Date: 20050107
  Serious: Yes (Life-Threatening, Hospitalization)
  Sender: FDA-Public Use
  Company Number: PHNU2004DE01007

PATIENT
  Age: 41 Year
  Sex: Female
  Weight: 57 kg

DRUGS (2)
  1. CLOZAPINE [Suspect]
     Dosage: UNKNOWN
     Route: 048
  2. L-THYROXIN-NATRIUM [Concomitant]
     Dosage: UNKNOWN
     Route: 065

REACTIONS (9)
  - DRUG SCREEN POSITIVE [None]
  - DRUG TOXICITY [None]
  - HYPOTHERMIA [None]
  - INTUBATION [None]
  - LIFE SUPPORT [None]
  - LOSS OF CONSCIOUSNESS [None]
  - RESPIRATORY FAILURE [None]
  - SOMNOLENCE [None]
  - SOPOR [None]
